FAERS Safety Report 13479082 (Version 1)
Quarter: 2017Q2

REPORT INFORMATION
  Report Type: Not Available
  Country: US (occurrence: US)
  Receive Date: 20170425
  Receipt Date: 20170425
  Transmission Date: 20170830
  Serious: No
  Sender: FDA-Public Use
  Company Number: US-MEDIMETRIKS-2017-US-001792

PATIENT
  Age: 9 Year
  Sex: Male

DRUGS (1)
  1. NEO-SYNALAR [Suspect]
     Active Substance: FLUOCINOLONE ACETONIDE\NEOMYCIN SULFATE
     Dosage: APPLIED TO ARM 2 TO 3 TIMES DAILY
     Route: 061

REACTIONS (1)
  - Drug ineffective [Unknown]
